FAERS Safety Report 5626033-5 (Version None)
Quarter: 2008Q1

REPORT INFORMATION
  Report Type: 
  Country: None (occurrence: None)
  Receive Date: 20080214
  Receipt Date: 20080208
  Transmission Date: 20080703
  Serious: Yes (Hospitalization, Other)
  Sender: FDA-Public Use
  Company Number: PHBS2007JP00909

PATIENT
  Age: 85 Year
  Sex: Female

DRUGS (2)
  1. VOLTAREN [Suspect]
     Dosage: UNK, UNK
     Route: 048
     Dates: start: 20061226, end: 20061226
  2. VOLTAREN [Suspect]
     Dates: start: 20070107, end: 20070107

REACTIONS (4)
  - HEPATIC ENZYME INCREASED [None]
  - HEPATITIS B [None]
  - JAUNDICE [None]
  - VOMITING [None]
